FAERS Safety Report 9214853 (Version 1)
Quarter: 2013Q2

REPORT INFORMATION
  Report Type: Spontaneous
  Country: US (occurrence: US)
  Receive Date: 20130405
  Receipt Date: 20130405
  Transmission Date: 20140414
  Serious: Yes (Other)
  Sender: FDA-Public Use
  Company Number: CHPA2013US005693

PATIENT
  Age: 32 Year
  Sex: Female

DRUGS (2)
  1. THERAFLU FLU [Suspect]
     Indication: BRONCHITIS
     Dosage: UNK, UNK
     Route: 048
     Dates: end: 201211
  2. THERAFLU FLU [Suspect]
     Indication: PNEUMONIA

REACTIONS (4)
  - Bronchitis [Recovered/Resolved]
  - Pneumonia [Recovered/Resolved]
  - Disease recurrence [Recovered/Resolved]
  - Off label use [Unknown]
